FAERS Safety Report 11688930 (Version 1)
Quarter: 2015Q4

REPORT INFORMATION
  Report Type: Spontaneous
  Country: US (occurrence: None)
  Receive Date: 20151030
  Receipt Date: 20151030
  Transmission Date: 20160304
  Serious: Yes (Other)
  Sender: FDA-Public Use
  Company Number: None

PATIENT
  Age: 70 Year
  Sex: Male
  Weight: 99.79 kg

DRUGS (1)
  1. ACETAZOLAMIDE. [Suspect]
     Active Substance: ACETAZOLAMIDE
     Indication: INTRAOCULAR PRESSURE INCREASED
     Route: 048
     Dates: start: 20151022, end: 20151024

REACTIONS (3)
  - Inhibitory drug interaction [None]
  - Drug ineffective [None]
  - Disease recurrence [None]

NARRATIVE: CASE EVENT DATE: 20151022
